FAERS Safety Report 25990193 (Version 1)
Quarter: 2025Q4

REPORT INFORMATION
  Report Type: Spontaneous
  Country: US (occurrence: None)
  Receive Date: 20251102
  Receipt Date: 20251102
  Transmission Date: 20260118
  Serious: Yes (Life-Threatening, Hospitalization, Disabling)
  Sender: FDA-CTU
  Company Number: None

PATIENT
  Age: 46 Year
  Sex: Female
  Weight: 117 kg

DRUGS (4)
  1. PHENTERMINE [Suspect]
     Active Substance: PHENTERMINE
     Indication: Weight decreased
     Dosage: 1 TABLET ORAL
     Route: 048
  2. PANTOPRAZOLE [Concomitant]
     Active Substance: PANTOPRAZOLE
  3. CALCIUM CARBONATE [Concomitant]
     Active Substance: CALCIUM CARBONATE
  4. ALEVE [Concomitant]
     Active Substance: NAPROXEN SODIUM

REACTIONS (17)
  - Tremor [None]
  - Muscle rigidity [None]
  - Muscle twitching [None]
  - Balance disorder [None]
  - Magnesium deficiency [None]
  - Vitamin B1 deficiency [None]
  - Urinary tract infection [None]
  - Chills [None]
  - Dysgeusia [None]
  - Impaired driving ability [None]
  - Eye disorder [None]
  - Seizure like phenomena [None]
  - Tremor [None]
  - Feeling cold [None]
  - Haematological infection [None]
  - Pain [None]
  - Appetite disorder [None]

NARRATIVE: CASE EVENT DATE: 20250214
